FAERS Safety Report 19613982 (Version 1)
Quarter: 2021Q3

REPORT INFORMATION
  Report Type: Spontaneous
  Country: US (occurrence: US)
  Receive Date: 20210726
  Receipt Date: 20210726
  Transmission Date: 20211014
  Serious: No
  Sender: FDA-Public Use
  Company Number: None

PATIENT
  Age: 55 Year
  Sex: Male
  Weight: 110 kg

DRUGS (1)
  1. PACLITAXEL (PACLITAXEL 300MG/50ML INJ, VIL, 50ML) [Suspect]
     Active Substance: PACLITAXEL
     Indication: METASTATIC SQUAMOUS CELL CARCINOMA
     Dosage: ?          OTHER ROUTE:IV?
     Route: 042
     Dates: start: 20210611, end: 20210611

REACTIONS (4)
  - Vomiting [None]
  - Nausea [None]
  - Back pain [None]
  - Flushing [None]

NARRATIVE: CASE EVENT DATE: 20210611
